FAERS Safety Report 17940854 (Version 1)
Quarter: 2020Q2

REPORT INFORMATION
  Report Type: Spontaneous
  Country: US (occurrence: US)
  Receive Date: 20200624
  Receipt Date: 20200624
  Transmission Date: 20200714
  Serious: No
  Sender: FDA-Public Use
  Company Number: None

PATIENT
  Age: 67 Year
  Sex: Male

DRUGS (1)
  1. EVEROLIMUS TAB 2.5MG [Suspect]
     Active Substance: EVEROLIMUS
     Route: 048
     Dates: start: 201911

REACTIONS (4)
  - Gastroenteritis viral [None]
  - White blood cell count decreased [None]
  - Therapy change [None]
  - Therapy interrupted [None]

NARRATIVE: CASE EVENT DATE: 20200617
